FAERS Safety Report 16351599 (Version 1)
Quarter: 2019Q3

REPORT INFORMATION
  Report Type: Spontaneous
  Country: US (occurrence: US)
  Receive Date: 20190523
  Receipt Date: 20190523
  Transmission Date: 20191004
  Serious: Yes (Disabling)
  Sender: FDA-Public Use
  Company Number: None

PATIENT
  Age: 50 Year
  Weight: 77.85 kg

DRUGS (4)
  1. TRAJENTA [Concomitant]
     Active Substance: LINAGLIPTIN
  2. GABAPENTIN. [Concomitant]
     Active Substance: GABAPENTIN
  3. JANUVIA [Suspect]
     Active Substance: SITAGLIPTIN PHOSPHATE
     Indication: DIABETES MELLITUS
  4. LISINOPRIL. [Concomitant]
     Active Substance: LISINOPRIL

REACTIONS (3)
  - Impaired gastric emptying [None]
  - Gait disturbance [None]
  - Muscle fatigue [None]

NARRATIVE: CASE EVENT DATE: 20140501
